FAERS Safety Report 9155926 (Version 1)
Quarter: 2013Q1

REPORT INFORMATION
  Report Type: Spontaneous
  Country: US (occurrence: US)
  Receive Date: 20130311
  Receipt Date: 20130311
  Transmission Date: 20140127
  Serious: No
  Sender: FDA-Public Use
  Company Number: US-ASTRAZENECA-2013SE07920

PATIENT
  Age: 28003 Day
  Sex: Female
  Weight: 70.3 kg

DRUGS (8)
  1. SYMBICORT PMDI [Suspect]
     Indication: ASTHMA
     Dosage: 160/4.5 BID
     Route: 055
     Dates: start: 2008
  2. NEXIUM [Suspect]
     Indication: GASTROOESOPHAGEAL REFLUX DISEASE
     Route: 048
     Dates: start: 201212
  3. NEXIUM [Suspect]
     Indication: GASTROOESOPHAGEAL REFLUX DISEASE
     Route: 048
     Dates: start: 201301
  4. AMIODARONE [Concomitant]
     Indication: VENTRICULAR ARRHYTHMIA
  5. SYNTHROID [Concomitant]
     Indication: THYROID DISORDER
  6. PREVACID [Concomitant]
     Indication: GASTROOESOPHAGEAL REFLUX DISEASE
  7. METFORMIN [Concomitant]
     Indication: DIABETES MELLITUS
  8. LOSARTAN [Concomitant]
     Indication: BLOOD PRESSURE

REACTIONS (5)
  - Heart rate irregular [Recovered/Resolved]
  - Paraesthesia [Recovered/Resolved]
  - Hypertension [Recovered/Resolved]
  - Intentional drug misuse [Unknown]
  - Gastrooesophageal reflux disease [Unknown]
